FAERS Safety Report 7672926-7 (Version None)
Quarter: 2011Q3

REPORT INFORMATION
  Report Type: 
  Country: None (occurrence: None)
  Receive Date: 20110809
  Receipt Date: 20110803
  Transmission Date: 20111222
  Serious: Yes (Hospitalization, Other)
  Sender: FDA-Public Use
  Company Number: PHEH2010US03471

PATIENT
  Sex: Female

DRUGS (29)
  1. ZELNORM [Suspect]
     Dosage: 6 MG, BID
     Route: 048
     Dates: start: 20050326
  2. AVANDIA [Concomitant]
  3. DIOVAN HCT [Concomitant]
  4. DARVOCET-N 50 [Concomitant]
  5. ENULOSE [Concomitant]
  6. KLOR-CON [Concomitant]
  7. LEVOTHYROXINE SODIUM [Concomitant]
  8. TOPROL-XL [Concomitant]
  9. NEXIUM [Concomitant]
     Dosage: 40 MG, 1 QD
  10. DIAZEPAM [Concomitant]
  11. TYLENOL-500 [Concomitant]
  12. ASPIRIN [Concomitant]
  13. ZANTAC [Concomitant]
  14. POTASSIUM CHLORIDE [Concomitant]
  15. AMBIEN [Concomitant]
  16. ALTACE [Concomitant]
  17. GAVISCON ^SCHERING-PLOUGH^ [Concomitant]
  18. SYNTHROID [Concomitant]
  19. SONATA [Concomitant]
  20. DIOVAN [Concomitant]
  21. ANTACID ^WALGREENS^ [Concomitant]
  22. PRILOSEC [Concomitant]
  23. ATENOLOL [Concomitant]
  24. PREVACID [Concomitant]
  25. PEPCID [Concomitant]
  26. VALIUM [Concomitant]
  27. NITROGLYCERIN ^PHARMACIA + UPJOHN^ [Concomitant]
  28. RANITIDINE [Concomitant]
  29. NITROLINGUAL PUMPSPRAY [Concomitant]

REACTIONS (14)
  - GALLBLADDER DISORDER [None]
  - INJURY [None]
  - DYSPNOEA EXERTIONAL [None]
  - CHEST DISCOMFORT [None]
  - CHEST PAIN [None]
  - INSOMNIA [None]
  - FATIGUE [None]
  - MULTIPLE INJURIES [None]
  - UMBILICAL HERNIA [None]
  - IMPAIRED GASTRIC EMPTYING [None]
  - DIABETES MELLITUS [None]
  - NIGHT SWEATS [None]
  - ANGINA UNSTABLE [None]
  - MALAISE [None]
